FAERS Safety Report 6931043-1 (Version None)
Quarter: 2010Q3

REPORT INFORMATION
  Report Type: 
  Country: None (occurrence: None)
  Receive Date: 20100818
  Receipt Date: 20100809
  Transmission Date: 20110219
  Serious: Yes (Other)
  Sender: FDA-Public Use
  Company Number: US-MILLENNIUM PHARMACEUTICALS, INC.-2010-04254

PATIENT
  Age: 76 Year
  Sex: Male

DRUGS (3)
  1. VELCADE [Suspect]
     Indication: MULTIPLE MYELOMA
  2. MELPHALAN [Suspect]
     Indication: MULTIPLE MYELOMA
  3. PREDNISONE [Suspect]
     Indication: MULTIPLE MYELOMA

REACTIONS (1)
  - DEAFNESS [None]
